FAERS Safety Report 23398597 (Version 1)
Quarter: 2024Q1

REPORT INFORMATION
  Report Type: Spontaneous
  Country: US (occurrence: US)
  Receive Date: 20240112
  Receipt Date: 20240112
  Transmission Date: 20240410
  Serious: No
  Sender: FDA-Public Use
  Company Number: US-PERRIGO-23US005517

PATIENT
  Age: 82 Year
  Sex: Male
  Weight: 72.562 kg

DRUGS (1)
  1. IBUPROFEN [Suspect]
     Active Substance: IBUPROFEN
     Indication: Arthritis
     Dosage: 200 MG, BID
     Route: 048
     Dates: start: 20230406, end: 20230502

REACTIONS (3)
  - Drug effective for unapproved indication [Unknown]
  - Expired product administered [Unknown]
  - Incorrect product administration duration [Unknown]

NARRATIVE: CASE EVENT DATE: 20230401
